FAERS Safety Report 4577155-1 (Version None)
Quarter: 2005Q1

REPORT INFORMATION
  Report Type: 
  Country: None (occurrence: None)
  Receive Date: 20050210
  Receipt Date: 20050202
  Transmission Date: 20050727
  Serious: Yes (Other)
  Sender: FDA-Public Use
  Company Number: US-ROCHE-394311

PATIENT
  Age: 60 Year
  Sex: Male

DRUGS (1)
  1. CARDENE [Suspect]
     Indication: HYPERTENSION
     Route: 065
     Dates: start: 20041218, end: 20041219

REACTIONS (1)
  - PULMONARY FIBROSIS [None]
